FAERS Safety Report 9121324 (Version 1)
Quarter: 2013Q1

REPORT INFORMATION
  Report Type: Spontaneous
  Country: US (occurrence: US)
  Receive Date: 20130225
  Receipt Date: 20130225
  Transmission Date: 20140127
  Serious: Yes (Other)
  Sender: FDA-Public Use
  Company Number: US-OTSUKA-US-2013-10325

PATIENT
  Age: 50 Year
  Sex: 0

DRUGS (1)
  1. SAMSCA [Suspect]

REACTIONS (4)
  - Alveolitis [None]
  - Lung infiltration [None]
  - CD4 lymphocytes increased [None]
  - Inflammation [None]
